FAERS Safety Report 7039772-9 (Version None)
Quarter: 2010Q4

REPORT INFORMATION
  Report Type: 
  Country: None (occurrence: None)
  Receive Date: 20101012
  Receipt Date: 20101004
  Transmission Date: 20110411
  Serious: Yes (Other)
  Sender: FDA-Public Use
  Company Number: BR-AMGEN-QUU443929

PATIENT
  Age: 47 Year
  Sex: Female
  Weight: 74 kg

DRUGS (3)
  1. ENBREL [Suspect]
     Indication: PSORIASIS
     Route: 058
     Dates: start: 20090501, end: 20100720
  2. FOLIC ACID [Concomitant]
     Route: 048
  3. METHOTREXATE [Concomitant]
     Route: 048

REACTIONS (2)
  - IMMUNE SYSTEM DISORDER [None]
  - SKIN CANCER [None]
